FAERS Safety Report 13063353 (Version 2)
Quarter: 2018Q1

REPORT INFORMATION
  Report Type: Spontaneous
  Country: US (occurrence: US)
  Receive Date: 20161227
  Receipt Date: 20180101
  Transmission Date: 20180508
  Serious: Yes (Life-Threatening, Hospitalization, Other)
  Sender: FDA-Public Use
  Company Number: US-ZYDUS-012980

PATIENT
  Age: 81 Year
  Sex: Female

DRUGS (4)
  1. TICAGRELOR. [Suspect]
     Active Substance: TICAGRELOR
     Indication: ATRIAL FIBRILLATION
     Route: 065
  2. AMIODARONE [Suspect]
     Active Substance: AMIODARONE
     Indication: CHEST PAIN
     Route: 065
  3. TICAGRELOR. [Suspect]
     Active Substance: TICAGRELOR
     Indication: CHEST PAIN
     Route: 065
  4. AMIODARONE [Suspect]
     Active Substance: AMIODARONE
     Indication: ATRIAL FIBRILLATION
     Route: 065

REACTIONS (9)
  - Sepsis [Unknown]
  - Dyspnoea [Unknown]
  - Orthopnoea [Unknown]
  - Cough [Unknown]
  - Alveolar proteinosis [Unknown]
  - Pulmonary toxicity [Unknown]
  - Hypoxia [Unknown]
  - Pneumonia [Unknown]
  - Respiratory failure [Unknown]
